FAERS Safety Report 8190310-7 (Version None)
Quarter: 2012Q1

REPORT INFORMATION
  Report Type: 
  Country: None (occurrence: None)
  Receive Date: 20120307
  Receipt Date: 20120228
  Transmission Date: 20120608
  Serious: Yes (Hospitalization)
  Sender: FDA-Public Use
  Company Number: NL-MEDIMMUNE-MEDI-0015082

PATIENT
  Sex: Female

DRUGS (3)
  1. BACTRIM [Concomitant]
     Dates: start: 20120217, end: 20120222
  2. SYNAGIS [Suspect]
     Indication: PREMATURE BABY
     Route: 030
     Dates: start: 20111012, end: 20120131
  3. SYNAGIS [Suspect]
     Route: 030
     Dates: start: 20120228, end: 20120228

REACTIONS (3)
  - URINARY TRACT INFECTION [None]
  - ROTAVIRUS INFECTION [None]
  - XEROSIS [None]
